FAERS Safety Report 7960043-8 (Version None)
Quarter: 2011Q4

REPORT INFORMATION
  Report Type: 
  Country: None (occurrence: None)
  Receive Date: 20111201
  Receipt Date: 20111115
  Transmission Date: 20120403
  Serious: Yes (Death)
  Sender: FDA-Public Use
  Company Number: 2009-040

PATIENT
  Age: 67 Year
  Sex: Female

DRUGS (13)
  1. SEREVENT [Concomitant]
  2. QVAR [Concomitant]
  3. COMBIVENT [Concomitant]
  4. DARVOCET (DEXTROPROPOXYPHENE HYDROCHLORIDE, PARACETAMOL) [Concomitant]
  5. ACETAMINOPHEN [Concomitant]
  6. REMERON [Concomitant]
  7. DEPAKOTE [Concomitant]
  8. ATIVAN [Concomitant]
  9. ABILIFTY (ARIPIPRAZOLE) [Concomitant]
  10. SPIRIVA [Concomitant]
  11. PROVIGIL [Concomitant]
  12. FAZACLO ODT [Suspect]
     Indication: SCHIZOPHRENIA
     Dosage: 100 MG QAM 450 MG QHS, ORAL
     Route: 048
     Dates: start: 20080401, end: 20090311
  13. RISPERDAL CONSTA [Concomitant]

REACTIONS (4)
  - ARTERIOSCLEROSIS [None]
  - HYPERLIPIDAEMIA [None]
  - CARDIAC ARREST [None]
  - ESSENTIAL HYPERTENSION [None]
